FAERS Safety Report 24052665 (Version 1)
Quarter: 2024Q3

REPORT INFORMATION
  Report Type: Report from Study
  Country: US (occurrence: US)
  Receive Date: 20240705
  Receipt Date: 20240705
  Transmission Date: 20241017
  Serious: Yes (Other)
  Sender: AUROBINDO
  Company Number: US-AUROBINDO-AUR-APL-2024-032637

PATIENT
  Age: 68 Year
  Sex: Male

DRUGS (6)
  1. COLCHICINE [Suspect]
     Active Substance: COLCHICINE
     Indication: Autoinflammatory disease
     Dosage: UNK
     Route: 065
  2. COLCHICINE [Suspect]
     Active Substance: COLCHICINE
     Indication: Pericarditis
  3. METHOTREXATE [Suspect]
     Active Substance: METHOTREXATE
     Indication: Autoinflammatory disease
     Dosage: UNK
     Route: 065
  4. PREDNISONE [Suspect]
     Active Substance: PREDNISONE
     Indication: Autoinflammatory disease
     Dosage: UNK (7?10MG DAILY)
     Route: 065
  5. SULFASALAZINE [Suspect]
     Active Substance: SULFASALAZINE
     Indication: Autoinflammatory disease
     Dosage: UNK
     Route: 065
  6. CANAKINUMAB [Suspect]
     Active Substance: CANAKINUMAB
     Indication: Autoinflammatory disease
     Dosage: 150 MILLIGRAM (SC CANAKINUMAB 150MG INJECTION)
     Route: 058

REACTIONS (2)
  - Whipple^s disease [Recovering/Resolving]
  - Drug ineffective [Unknown]
